FAERS Safety Report 16694248 (Version 3)
Quarter: 2019Q3

REPORT INFORMATION
  Report Type: Report from Study
  Country: US (occurrence: US)
  Receive Date: 20190812
  Receipt Date: 20190924
  Transmission Date: 20191004
  Serious: Yes (Hospitalization)
  Sender: FDA-Public Use
  Company Number: US-EISAI MEDICAL RESEARCH-EC-2019-055091

PATIENT
  Sex: Male
  Weight: 113 kg

DRUGS (11)
  1. LENVIMA [Suspect]
     Active Substance: LENVATINIB
     Indication: HEPATOCELLULAR CARCINOMA
     Route: 048
     Dates: start: 2019, end: 201909
  2. ADVIL [Concomitant]
     Active Substance: IBUPROFEN
  3. LENVIMA [Suspect]
     Active Substance: LENVATINIB
     Route: 048
     Dates: start: 201909
  4. FISH OIL [Concomitant]
     Active Substance: FISH OIL
  5. HUMALOG [Concomitant]
     Active Substance: INSULIN LISPRO
  6. LEVEMIR [Concomitant]
     Active Substance: INSULIN DETEMIR
  7. METFORMIN HCL [Concomitant]
     Active Substance: METFORMIN HYDROCHLORIDE
  8. ASPIRIN. [Concomitant]
     Active Substance: ASPIRIN
  9. HYDROCODONE-ACETAMINOPHEN [Concomitant]
     Active Substance: ACETAMINOPHEN\HYDROCODONE
  10. LOSARTAN POTASSIUM. [Concomitant]
     Active Substance: LOSARTAN POTASSIUM
  11. SIMVASTATIN. [Concomitant]
     Active Substance: SIMVASTATIN

REACTIONS (8)
  - Pain in extremity [Unknown]
  - Vomiting [Unknown]
  - Pain [Unknown]
  - Arthralgia [Unknown]
  - Blood pressure increased [Unknown]
  - Myalgia [Unknown]
  - Oral pain [Unknown]
  - Nausea [Unknown]

NARRATIVE: CASE EVENT DATE: 2019
